FAERS Safety Report 23057575 (Version 2)
Quarter: 2023Q4

REPORT INFORMATION
  Report Type: Spontaneous
  Country: US (occurrence: US)
  Receive Date: 20231012
  Receipt Date: 20231023
  Transmission Date: 20240109
  Serious: Yes (Life-Threatening, Hospitalization)
  Sender: FDA-Public Use
  Company Number: US-TEVA-2023-US-2933096

PATIENT
  Age: 41 Year
  Sex: Male

DRUGS (5)
  1. OCTREOTIDE [Suspect]
     Active Substance: OCTREOTIDE
     Indication: Oesophageal varices haemorrhage
     Route: 050
  2. ATROPINE [Suspect]
     Active Substance: ATROPINE
     Indication: Bradycardia
     Dosage: RECEIVED 2 DOSES DURING CARDIOPULMONARY RESUSCITATION AND AN ADDITIONAL DOSE THEREAFTER; DOSES UNKNO
     Route: 065
  3. AMILORIDE [Concomitant]
     Active Substance: AMILORIDE
     Indication: Product used for unknown indication
     Route: 065
  4. LASIX [Concomitant]
     Active Substance: FUROSEMIDE
     Indication: Cirrhosis alcoholic
     Route: 065
  5. EPINEPHRINE [Concomitant]
     Active Substance: EPINEPHRINE
     Indication: Cardiac arrest
     Route: 065

REACTIONS (2)
  - Atrioventricular block complete [Unknown]
  - Drug ineffective [Unknown]
